FAERS Safety Report 10050914 (Version 2)
Quarter: 2014Q2

REPORT INFORMATION
  Report Type: Spontaneous
  Country: US (occurrence: US)
  Receive Date: 20140401
  Receipt Date: 20140429
  Transmission Date: 20141212
  Serious: Yes (Death, Hospitalization)
  Sender: FDA-Public Use
  Company Number: US-GLAXOSMITHKLINE-A1066497A

PATIENT
  Age: 67 Year
  Sex: Male

DRUGS (3)
  1. ARIXTRA [Suspect]
     Indication: DEEP VEIN THROMBOSIS
     Route: 058
  2. HYDROCODONE [Concomitant]
  3. UNKNOWN DRUG FOR ANXIETY [Concomitant]

REACTIONS (5)
  - Death [Fatal]
  - Transfusion [Unknown]
  - Haemorrhage [Unknown]
  - Anaemia [Unknown]
  - Blood blister [Unknown]
